FAERS Safety Report 16682126 (Version 1)
Quarter: 2019Q3

REPORT INFORMATION
  Report Type: Spontaneous
  Country: GB (occurrence: GB)
  Receive Date: 20190808
  Receipt Date: 20190808
  Transmission Date: 20191004
  Serious: Yes (Other)
  Sender: FDA-Public Use
  Company Number: GB-PFIZER INC-2019331913

PATIENT
  Age: 50 Year
  Sex: Male
  Weight: 84 kg

DRUGS (4)
  1. NITROGLYCERIN. [Suspect]
     Active Substance: NITROGLYCERIN
     Indication: ANGIOPLASTY
     Dosage: VARIABLE DOSES
     Route: 013
     Dates: start: 20190705, end: 20190705
  2. HEPARIN [Suspect]
     Active Substance: HEPARIN SODIUM
     Indication: ANGIOPLASTY
     Dosage: 11500 IU, UNK
     Route: 013
     Dates: start: 20190705, end: 20190705
  3. VERAPAMIL [Suspect]
     Active Substance: VERAPAMIL HYDROCHLORIDE
     Dosage: 2.5 MG, UNK
     Route: 013
     Dates: start: 20190705, end: 20190705
  4. TIROFIBAN [Suspect]
     Active Substance: TIROFIBAN
     Indication: THROMBOSIS
     Dosage: BOLUS 46ML FOLLOWED BY 15ML/HR
     Route: 042
     Dates: start: 20190705, end: 20190705

REACTIONS (5)
  - Pyrexia [Not Recovered/Not Resolved]
  - Chills [Recovered/Resolved with Sequelae]
  - Feeling cold [Unknown]
  - Hypoxia [Recovered/Resolved with Sequelae]
  - Hypotension [Recovered/Resolved with Sequelae]

NARRATIVE: CASE EVENT DATE: 20190705
